FAERS Safety Report 18931503 (Version 1)
Quarter: 2021Q1

REPORT INFORMATION
  Report Type: Spontaneous
  Country: FR (occurrence: FR)
  Receive Date: 20210224
  Receipt Date: 20210224
  Transmission Date: 20210420
  Serious: Yes (Hospitalization)
  Sender: FDA-Public Use
  Company Number: FR-BAUSCH-BL-2021-005541

PATIENT
  Age: 76 Year
  Sex: Male

DRUGS (2)
  1. GENTAMICINE [Suspect]
     Active Substance: GENTAMICIN
     Indication: INFECTION
     Route: 042
     Dates: start: 20210108, end: 20210114
  2. CLOXACILLINE [Suspect]
     Active Substance: CLOXACILLIN
     Indication: INFECTION
     Route: 042
     Dates: start: 20210108, end: 20210119

REACTIONS (2)
  - Renal failure [Recovering/Resolving]
  - Overdose [Recovering/Resolving]

NARRATIVE: CASE EVENT DATE: 20210108
